FAERS Safety Report 14190875 (Version 2)
Quarter: 2018Q1

REPORT INFORMATION
  Report Type: Spontaneous
  Country: CA (occurrence: CA)
  Receive Date: 20171115
  Receipt Date: 20180327
  Transmission Date: 20180508
  Serious: Yes (Hospitalization)
  Sender: FDA-Public Use
  Company Number: CA-PFIZER INC-2017479286

PATIENT
  Age: 16 Year
  Sex: Female

DRUGS (8)
  1. MULTVIT /02170301/ [Concomitant]
     Dosage: UNK
     Dates: start: 2011
  2. DILANTIN [Suspect]
     Active Substance: PHENYTOIN
     Indication: SEIZURE
     Dosage: 230 MG, 2X/DAY (CHEWABLE)
     Dates: start: 2015
  3. BRIVLERA [Concomitant]
     Active Substance: BRIVARACETAM
     Dosage: 100 MG, 2X/DAY (AM AND PM)
     Dates: start: 201711
  4. DILANTIN [Suspect]
     Active Substance: PHENYTOIN
     Dosage: 200 MG, UNK
  5. CLOBAZAM [Concomitant]
     Active Substance: CLOBAZAM
     Dosage: 30 MG, UNK (PM)
     Dates: start: 2015
  6. VITAMIN D [Concomitant]
     Active Substance: CHOLECALCIFEROL
     Dosage: UNK
     Dates: start: 2016
  7. DILANTIN [Suspect]
     Active Substance: PHENYTOIN
     Dosage: 225 MG, DAILY (100 MG AM AND 125 MG PM)
     Dates: start: 2015
  8. DILANTIN [Suspect]
     Active Substance: PHENYTOIN
     Dosage: 100 MG, UNK

REACTIONS (5)
  - Growth retardation [Unknown]
  - Hypertrichosis [Unknown]
  - Delayed puberty [Unknown]
  - Gingival hypertrophy [Unknown]
  - Drug effect incomplete [Unknown]
